FAERS Safety Report 6791575-6 (Version None)
Quarter: 2010Q2

REPORT INFORMATION
  Report Type: 
  Country: None (occurrence: None)
  Receive Date: 20100624
  Receipt Date: 20090618
  Transmission Date: 20101027
  Serious: Yes (Other)
  Sender: FDA-Public Use
  Company Number: US-PFIZER INC-2008057997

PATIENT
  Sex: Female
  Weight: 59 kg

DRUGS (11)
  1. PROVERA [Suspect]
     Indication: HORMONE REPLACEMENT THERAPY
     Dosage: UNK
     Route: 048
     Dates: start: 19870727, end: 20031010
  2. OGEN [Suspect]
     Indication: HORMONE REPLACEMENT THERAPY
     Dosage: 1.25 MG, UNK
     Route: 048
     Dates: start: 19940303, end: 19950818
  3. OGEN [Suspect]
     Dosage: 1.25 MG, UNK
     Dates: start: 20030403, end: 20030930
  4. PREMARIN [Suspect]
     Indication: HORMONE REPLACEMENT THERAPY
     Dosage: 0.625 MG, UNK
     Dates: start: 19870727, end: 20031010
  5. OGEN [Suspect]
     Dosage: 0.625 MG, UNK
     Dates: start: 19870727, end: 19940127
  6. BENICAR [Concomitant]
     Indication: BLOOD PRESSURE
     Dosage: 40 MG, UNK
     Dates: start: 20040101
  7. PLAVIX [Concomitant]
     Indication: BLOOD PRESSURE
     Dosage: 75 MG, UNK
     Dates: start: 20040101
  8. PLAVIX [Concomitant]
     Indication: ANTICOAGULANT THERAPY
  9. ACETYLSALICYLIC ACID [Concomitant]
     Indication: BLOOD PRESSURE
     Dosage: 81 MG, UNK
     Dates: start: 20040101
  10. ACETYLSALICYLIC ACID [Concomitant]
     Indication: ANTICOAGULANT THERAPY
  11. VYTORIN [Concomitant]
     Indication: BLOOD CHOLESTEROL
     Dosage: 40 MG, UNK
     Dates: start: 20040101

REACTIONS (1)
  - BREAST CANCER FEMALE [None]
